FAERS Safety Report 6672539-X (Version None)
Quarter: 2010Q2

REPORT INFORMATION
  Report Type: 
  Country: None (occurrence: None)
  Receive Date: 20100408
  Receipt Date: 20100329
  Transmission Date: 20101027
  Serious: Yes (Other)
  Sender: FDA-Public Use
  Company Number: US-EISAI INC.-E3810-03660-SPO-US

PATIENT
  Sex: Female
  Weight: 71 kg

DRUGS (12)
  1. ACIPHEX [Suspect]
     Dosage: UNKNOWN
     Route: 048
  2. HUMIRA [Suspect]
     Indication: CROHN'S DISEASE
  3. HUMIRA [Suspect]
     Dosage: 80MG LOADING DOSE
  4. HUMIRA [Suspect]
     Dosage: 160MG LOADING DOSE
     Dates: start: 20091219, end: 20091219
  5. MESALAZINE [Concomitant]
     Route: 048
  6. OMEPRAZOLE [Concomitant]
  7. CELECOXIB [Concomitant]
  8. TOPIRAMATE [Concomitant]
  9. RISPERIDONE [Concomitant]
  10. LEVOTHYROXINE SODIUM [Concomitant]
  11. M.V.I. [Concomitant]
     Dosage: 1 TABLET
  12. LITHIUM [Concomitant]

REACTIONS (2)
  - COUGH [None]
  - GASTRIC POLYPS [None]
